FAERS Safety Report 6712088-3 (Version None)
Quarter: 2010Q2

REPORT INFORMATION
  Report Type: 
  Country: None (occurrence: None)
  Receive Date: 20100505
  Receipt Date: 20100428
  Transmission Date: 20101027
  Serious: Yes (Other)
  Sender: FDA-Public Use
  Company Number: US-ASTRAZENECA-2010SE19140

PATIENT
  Age: 61 Year
  Sex: Female
  Weight: 84.8 kg

DRUGS (5)
  1. SEROQUEL [Suspect]
     Indication: INSOMNIA
     Route: 048
     Dates: end: 20090201
  2. SEROQUEL [Suspect]
     Route: 048
     Dates: start: 20090201
  3. DEPAKOTE [Concomitant]
  4. SYNTHROID [Concomitant]
  5. HYZAAR [Concomitant]

REACTIONS (5)
  - ABDOMINAL DISCOMFORT [None]
  - DEPRESSED LEVEL OF CONSCIOUSNESS [None]
  - FALL [None]
  - LOSS OF CONSCIOUSNESS [None]
  - VOMITING [None]
